FAERS Safety Report 8908395 (Version 1)
Quarter: 2012Q4

REPORT INFORMATION
  Report Type: 
  Country: AR (occurrence: AR)
  Receive Date: 20121114
  Receipt Date: 20121114
  Transmission Date: 20130627
  Serious: Yes (Death, Hospitalization)
  Sender: FDA-Public Use
  Company Number: PHHY2012AR104612

PATIENT
  Sex: Male

DRUGS (1)
  1. ONBREZ [Suspect]
     Indication: EMPHYSEMA
     Dosage: 150 ug, BID
     Dates: start: 20110913

REACTIONS (1)
  - Cardio-respiratory arrest [Fatal]
